FAERS Safety Report 24590134 (Version 2)
Quarter: 2024Q4

REPORT INFORMATION
  Report Type: Spontaneous
  Country: US (occurrence: US)
  Receive Date: 20241107
  Receipt Date: 20241122
  Transmission Date: 20250115
  Serious: Yes (Life-Threatening, Hospitalization)
  Sender: TEVA
  Company Number: US-TEVA-VS-3260318

PATIENT
  Age: 40 Year
  Sex: Female

DRUGS (9)
  1. NALOXONE [Suspect]
     Active Substance: NALOXONE
     Indication: Cardiac arrest
     Dosage: 1 DOSE
     Route: 065
  2. EPINEPHRINE [Suspect]
     Active Substance: EPINEPHRINE
     Indication: Cardiac arrest
     Dosage: 1 DOSE
     Route: 065
  3. ISOPROTERENOL [Suspect]
     Active Substance: ISOPROTERENOL
     Indication: Cardiac arrest
     Route: 065
  4. SODIUM BICARBONATE [Suspect]
     Active Substance: SODIUM BICARBONATE
     Indication: Cardiac arrest
     Dosage: 1 DOSE
     Route: 065
  5. AMIODARONE [Suspect]
     Active Substance: AMIODARONE
     Indication: Cardiac arrest
     Dosage: INFUSION
     Route: 042
  6. LIDOCAINE [Suspect]
     Active Substance: LIDOCAINE
     Indication: Cardiac arrest
     Dosage: DRIP
     Route: 065
  7. METHADONE [Suspect]
     Active Substance: METHADONE HYDROCHLORIDE
     Indication: Drug dependence
     Dosage: FOR 20?PLUS YEARS
     Route: 065
  8. METHADONE [Suspect]
     Active Substance: METHADONE HYDROCHLORIDE
     Indication: Drug dependence
     Dosage: FOR 4?DAYS AND WAS DISCONTINUED 5?DAYS AFTER HER ADMISSION
     Route: 065
  9. MAGNESIUM [Suspect]
     Active Substance: MAGNESIUM
     Indication: Cardiac arrest
     Route: 065

REACTIONS (2)
  - Cardiac arrest [Unknown]
  - Drug ineffective [Unknown]
